FAERS Safety Report 5491171-7 (Version None)
Quarter: 2007Q4

REPORT INFORMATION
  Report Type: 
  Country: None (occurrence: None)
  Receive Date: 20071019
  Receipt Date: 20071015
  Transmission Date: 20080405
  Serious: Yes (Death)
  Sender: FDA-Public Use
  Company Number: US-ABBOTT-07P-163-0420796-00

PATIENT
  Sex: Male

DRUGS (4)
  1. HUMIRA [Suspect]
     Indication: PSORIATIC ARTHROPATHY
     Route: 058
     Dates: start: 20060101
  2. HUMIRA [Suspect]
     Indication: PSORIASIS
     Dosage: SYRINGE
     Route: 058
     Dates: start: 20051220, end: 20060101
  3. TRIAMCINOLONE [Concomitant]
     Indication: PSORIATIC ARTHROPATHY
     Dosage: 0.1% OINTMENT
     Route: 061
  4. TRIAMCINOLONE [Concomitant]
     Indication: PSORIASIS

REACTIONS (2)
  - DIARRHOEA [None]
  - OEDEMA [None]
